FAERS Safety Report 23554663 (Version 1)
Quarter: 2024Q1

REPORT INFORMATION
  Report Type: Spontaneous
  Country: SE (occurrence: SE)
  Receive Date: 20240222
  Receipt Date: 20240222
  Transmission Date: 20240410
  Serious: Yes (Other)
  Sender: FDA-Public Use
  Company Number: SE-BBM-SE-BBM-202400560

PATIENT
  Age: 78 Year
  Sex: Female

DRUGS (2)
  1. ROPIVACAINE. [Suspect]
     Active Substance: ROPIVACAINE HYDROCHLORIDE
     Indication: Product used for unknown indication
     Dosage: STRENGTH: 2 MG/ML?FORM OF ADMIN: SOLUTION FOR INJECTION/INFUSION
     Route: 042
     Dates: start: 20231229
  2. METRONIDAZOLE [Suspect]
     Active Substance: METRONIDAZOLE
     Indication: Product used for unknown indication

REACTIONS (3)
  - Loss of consciousness [Recovered/Resolved]
  - Blood pressure decreased [Recovered/Resolved]
  - Medication error [Unknown]
